FAERS Safety Report 9303511 (Version 5)
Quarter: 2017Q3

REPORT INFORMATION
  Report Type: Report from Study
  Country: CZ (occurrence: CZ)
  Receive Date: 20130522
  Receipt Date: 20170801
  Transmission Date: 20171128
  Serious: Yes (Death, Hospitalization)
  Sender: FDA-Public Use
  Company Number: CZ-ROCHE-1160985

PATIENT
  Age: 65 Year
  Sex: Female
  Weight: 72 kg

DRUGS (12)
  1. DIAPREL [Concomitant]
     Active Substance: GLICLAZIDE
     Indication: DIABETES MELLITUS
     Route: 065
     Dates: start: 200812
  2. ANOPYRIN [Concomitant]
     Active Substance: ASPIRIN
     Indication: MYOCARDIAL ISCHAEMIA
     Route: 065
     Dates: start: 2005
  3. PERTUZUMAB. [Suspect]
     Active Substance: PERTUZUMAB
     Indication: HER-2 POSITIVE BREAST CANCER
     Route: 042
     Dates: start: 20110620
  4. LORISTA [Concomitant]
     Active Substance: LOSARTAN POTASSIUM
     Indication: HYPERTENSION
     Route: 065
     Dates: start: 1990
  5. PREDNISONE. [Concomitant]
     Active Substance: PREDNISONE
     Indication: PNEUMONITIS
     Route: 065
     Dates: start: 20111214
  6. PERTUZUMAB. [Suspect]
     Active Substance: PERTUZUMAB
     Dosage: DATE OF LAST DOSE PRIOR TO SAE: 02/NOV/2012
     Route: 042
  7. BETAXA [Concomitant]
     Indication: HYPERTENSION
     Route: 065
     Dates: start: 1990
  8. DITHIADEN [Concomitant]
     Active Substance: BISULEPIN
     Route: 065
     Dates: start: 20110621, end: 20121102
  9. TRASTUZUMAB EMTANSINE [Suspect]
     Active Substance: ADO-TRASTUZUMAB EMTANSINE
     Indication: HER-2 POSITIVE BREAST CANCER
     Dosage: DATE OF LAST DOSE PRIOR TO SAE: 02/NOV/2012, DOSE OF LAST T-DM1 TAKEN: 222 MG
     Route: 042
     Dates: start: 20110620
  10. LOMIR [Concomitant]
     Indication: HYPERTENSION
     Route: 065
     Dates: start: 1990
  11. GENSI [Concomitant]
     Indication: HYPERLIPIDAEMIA
     Route: 065
     Dates: start: 201006
  12. KYTRIL [Concomitant]
     Active Substance: GRANISETRON HYDROCHLORIDE

REACTIONS (1)
  - Pneumonia [Fatal]

NARRATIVE: CASE EVENT DATE: 20121123
